FAERS Safety Report 4566833-6 (Version None)
Quarter: 2005Q1

REPORT INFORMATION
  Report Type: 
  Country: None (occurrence: None)
  Receive Date: 20050201
  Receipt Date: 20020418
  Transmission Date: 20050727
  Serious: Yes (Other)
  Sender: FDA-Public Use
  Company Number: US-BRISTOL-MYERS SQUIBB COMPANY-11834231

PATIENT
  Age: 46 Year
  Sex: Female

DRUGS (13)
  1. STADOL [Suspect]
     Route: 045
     Dates: start: 19971025, end: 20000920
  2. AMILORIDE HCL + HCTZ [Concomitant]
  3. AMITRIPTYLINE [Concomitant]
  4. ACETAMINOPHEN AND CODEINE PHOSPHATE [Concomitant]
  5. TRIAZOLAM [Concomitant]
  6. ALPRAZOLAM [Concomitant]
  7. HYDROXYZINE [Concomitant]
  8. RANITIDINE [Concomitant]
  9. PROMETHAZINE [Concomitant]
  10. LORAZEPAM [Concomitant]
  11. ULTRAM [Concomitant]
  12. TEMAZEPAM [Concomitant]
  13. NEURONTIN [Concomitant]

REACTIONS (1)
  - DEPENDENCE [None]
